FAERS Safety Report 4777902-X (Version None)
Quarter: 2005Q3

REPORT INFORMATION
  Report Type: 
  Country: None (occurrence: None)
  Receive Date: 20050922
  Receipt Date: 20050909
  Transmission Date: 20060218
  Serious: Yes (Other)
  Sender: FDA-Public Use
  Company Number: 505#3#2005-01521

PATIENT
  Age: 59 Year
  Sex: Female

DRUGS (7)
  1. LINATIL 10 MG (FIN) (ENALAPRIL) [Suspect]
     Indication: HYPERTENSION
     Dosage: 10 MILLIGRAM, P.O.
     Route: 048
     Dates: start: 20050524, end: 20050731
  2. LANTUS [Concomitant]
  3. NOVORAPID [Concomitant]
  4. THYROXEN [Concomitant]
  5. ESTROGEL 0.6 MG/G [Concomitant]
  6. AERIUS 5MG [Concomitant]
  7. KESTINE [Concomitant]

REACTIONS (7)
  - ANXIETY [None]
  - BLOOD GLUCOSE FLUCTUATION [None]
  - BLOOD PRESSURE SYSTOLIC INCREASED [None]
  - CHEST DISCOMFORT [None]
  - GLYCOSYLATED HAEMOGLOBIN INCREASED [None]
  - HOT FLUSH [None]
  - HYPOGLYCAEMIA [None]
